FAERS Safety Report 9370664 (Version 2)
Quarter: 2014Q1

REPORT INFORMATION
  Report Type: Spontaneous
  Country: US (occurrence: US)
  Receive Date: 20130626
  Receipt Date: 20140331
  Transmission Date: 20141002
  Serious: Yes (Death)
  Sender: FDA-Public Use
  Company Number: US-INCYTE CORPORATION-2013IN001361

PATIENT
  Sex: Female
  Weight: 57.6 kg

DRUGS (2)
  1. JAKAFI [Suspect]
     Indication: MYELOFIBROSIS
     Dosage: 25 MG, BID
     Route: 048
     Dates: start: 20121107
  2. JAKAFI [Suspect]
     Dosage: 10 MG, BID
     Route: 048

REACTIONS (1)
  - Death [Fatal]
